FAERS Safety Report 13375510 (Version 3)
Quarter: 2018Q1

REPORT INFORMATION
  Report Type: Spontaneous
  Country: US (occurrence: US)
  Receive Date: 20170328
  Receipt Date: 20180319
  Transmission Date: 20180508
  Serious: Yes (Other)
  Sender: FDA-Public Use
  Company Number: US-TEVA-749513ACC

PATIENT
  Age: 44 Year
  Sex: Female

DRUGS (15)
  1. AVAPRO [Concomitant]
     Active Substance: IRBESARTAN
  2. NEUORONTIN [Concomitant]
  3. PRILOSEC [Concomitant]
     Active Substance: OMEPRAZOLE MAGNESIUM
  4. VITAMIN B12 [Concomitant]
     Active Substance: CYANOCOBALAMIN
  5. COPAXONE [Suspect]
     Active Substance: GLATIRAMER ACETATE
     Indication: MULTIPLE SCLEROSIS
     Route: 058
     Dates: start: 20161018
  6. KLONOPIN [Concomitant]
     Active Substance: CLONAZEPAM
  7. BENADRYL [Concomitant]
     Active Substance: DIPHENHYDRAMINE HYDROCHLORIDE
  8. TEGRETOL [Concomitant]
     Active Substance: CARBAMAZEPINE
  9. VITAMIN D [Concomitant]
     Active Substance: CHOLECALCIFEROL
  10. MIRALAX [Concomitant]
     Active Substance: POLYETHYLENE GLYCOL 3350
  11. TOPAMAX [Concomitant]
     Active Substance: TOPIRAMATE
  12. CELEXA [Concomitant]
     Active Substance: CITALOPRAM HYDROBROMIDE
  13. IRON [Concomitant]
     Active Substance: IRON
  14. TYLENOL [Concomitant]
     Active Substance: ACETAMINOPHEN
  15. PRAZOSIN HCL [Concomitant]
     Active Substance: PRAZOSIN HYDROCHLORIDE

REACTIONS (3)
  - Multiple sclerosis relapse [Not Recovered/Not Resolved]
  - Pruritus [Unknown]
  - Fall [Unknown]

NARRATIVE: CASE EVENT DATE: 201703
